FAERS Safety Report 10363604 (Version 1)
Quarter: 2014Q3

REPORT INFORMATION
  Report Type: Other
  Country: SA (occurrence: SA)
  Receive Date: 20140805
  Receipt Date: 20140805
  Transmission Date: 20150326
  Serious: Yes (Other)
  Sender: FDA-Public Use
  Company Number: SA-BRISTOL-MYERS SQUIBB COMPANY-21259841

PATIENT

DRUGS (2)
  1. IFOSFAMIDE. [Suspect]
     Active Substance: IFOSFAMIDE
     Indication: SARCOMA
     Dosage: 1DF=2GM/M2 THREE TIMES PER DAY
  2. MESNA. [Concomitant]
     Active Substance: MESNA
     Dosage: 3 TIMES /DAY

REACTIONS (1)
  - Skin reaction [Unknown]
